FAERS Safety Report 9712026 (Version 3)
Quarter: 2014Q4

REPORT INFORMATION
  Report Type: Spontaneous
  Country: US (occurrence: US)
  Receive Date: 20131126
  Receipt Date: 20141205
  Transmission Date: 20150529
  Serious: No
  Sender: FDA-Public Use
  Company Number: US-BRISTOL-MYERS SQUIBB COMPANY-19135037

PATIENT
  Age: 54 Year
  Sex: Female
  Weight: 112.92 kg

DRUGS (6)
  1. GLYBURIDE. [Concomitant]
     Active Substance: GLYBURIDE
  2. BYDUREON [Suspect]
     Active Substance: EXENATIDE
     Indication: TYPE 2 DIABETES MELLITUS
     Dosage: INJECTION ?ONGOING
     Route: 058
  3. METFORMIN [Concomitant]
     Active Substance: METFORMIN HYDROCHLORIDE
  4. GLIMEPIRIDE. [Concomitant]
     Active Substance: GLIMEPIRIDE
  5. VITAMIN E [Concomitant]
     Active Substance: .ALPHA.-TOCOPHEROL
  6. LISINOPRIL. [Concomitant]
     Active Substance: LISINOPRIL
     Indication: BLOOD CHOLESTEROL ABNORMAL

REACTIONS (4)
  - Injection site nodule [Unknown]
  - Wrong technique in drug usage process [Recovered/Resolved]
  - Injection site discolouration [Unknown]
  - Diarrhoea [Unknown]

NARRATIVE: CASE EVENT DATE: 20130817
